FAERS Safety Report 9872877 (Version 3)
Quarter: 2014Q2

REPORT INFORMATION
  Report Type: Spontaneous
  Country: DE (occurrence: DE)
  Receive Date: 20140206
  Receipt Date: 20140513
  Transmission Date: 20141212
  Serious: Yes (Other)
  Sender: FDA-Public Use
  Company Number: DE-ROCHE-1343909

PATIENT
  Age: 74 Year
  Sex: Male
  Weight: 80 kg

DRUGS (7)
  1. XOLAIR [Suspect]
     Indication: ASTHMA
     Route: 058
     Dates: start: 20131104
  2. XOLAIR [Suspect]
     Route: 058
     Dates: start: 20131202, end: 20131202
  3. CORTISONE [Concomitant]
     Dosage: INITIAL DOSE
     Route: 065
  4. CORTISONE [Concomitant]
     Dosage: DOSE INCREASED
     Route: 065
  5. URBASON [Concomitant]
  6. THEOPHYLLIN [Concomitant]
  7. FENOTEROL HYDROBROMIDE/IPRATROPIUM BROMIDE [Concomitant]

REACTIONS (11)
  - Arrhythmia [Recovered/Resolved]
  - Abdominal pain upper [Recovered/Resolved]
  - Pruritus [Recovered/Resolved]
  - Nausea [Recovered/Resolved]
  - Urticaria [Recovered/Resolved]
  - Headache [Recovered/Resolved]
  - Bone pain [Recovered/Resolved]
  - Somnolence [Recovered/Resolved]
  - Hypersensitivity [Unknown]
  - Palpitations [Unknown]
  - Dizziness [Unknown]
